FAERS Safety Report 5096537-5 (Version None)
Quarter: 2006Q3

REPORT INFORMATION
  Report Type: 
  Country: None (occurrence: None)
  Receive Date: 20060830
  Receipt Date: 20060815
  Transmission Date: 20061208
  Serious: Yes (Hospitalization, Other)
  Sender: FDA-Public Use
  Company Number: S06-IRL-01956-01

PATIENT
  Age: 2 Month
  Sex: Male
  Weight: 3.385 kg

DRUGS (1)
  1. LEXAPRO [Suspect]
     Indication: DEPRESSION
     Dosage: 10 MG QD TRANSPLACENTAL
     Route: 064
     Dates: end: 20060220

REACTIONS (4)
  - DRUG EXPOSURE DURING PREGNANCY [None]
  - DRUG WITHDRAWAL SYNDROME NEONATAL [None]
  - NEONATAL DISORDER [None]
  - PLATELET COUNT DECREASED [None]
